FAERS Safety Report 25943185 (Version 1)
Quarter: 2025Q4

REPORT INFORMATION
  Report Type: Spontaneous
  Country: US (occurrence: None)
  Receive Date: 20251020
  Receipt Date: 20251020
  Transmission Date: 20260118
  Serious: Yes (Hospitalization)
  Sender: FDA-CTU
  Company Number: None

PATIENT
  Age: 65 Year
  Sex: Male

DRUGS (11)
  1. MYCOPHENOLATE MOFETIL [Suspect]
     Active Substance: MYCOPHENOLATE MOFETIL
     Indication: Lung transplant
     Dosage: FREQUENCY : TWICE A DAY;?
     Route: 048
     Dates: start: 20250402
  2. ACETAMINOPHEN\OXYCODONE HYDROCHLORIDE [Concomitant]
     Active Substance: ACETAMINOPHEN\OXYCODONE HYDROCHLORIDE
  3. OXYCODONE IMMEDIATE REL [Concomitant]
  4. METHOCARBAMOL [Concomitant]
     Active Substance: METHOCARBAMOL
  5. MELATONIN [Concomitant]
     Active Substance: MELATONIN
  6. FOLIC ACID [Concomitant]
     Active Substance: FOLIC ACID
  7. CARVEDILOL [Concomitant]
     Active Substance: CARVEDILOL
  8. MAGNESIUM OXIDE [Concomitant]
     Active Substance: MAGNESIUM OXIDE
  9. HUMALOG KWIKPEN [Concomitant]
     Active Substance: INSULIN LISPRO
  10. ALENDRONATE [Concomitant]
     Active Substance: ALENDRONATE SODIUM
  11. AMLODIPINE BESYLATE [Concomitant]
     Active Substance: AMLODIPINE BESYLATE

REACTIONS (1)
  - Total lung capacity decreased [None]

NARRATIVE: CASE EVENT DATE: 20251001
